FAERS Safety Report 22265142 (Version 1)
Quarter: 2023Q2

REPORT INFORMATION
  Report Type: Spontaneous
  Country: US (occurrence: None)
  Receive Date: 20230426
  Receipt Date: 20230426
  Transmission Date: 20230721
  Serious: Yes (Death)
  Sender: FDA-Public Use
  Company Number: None

PATIENT
  Age: 73 Year
  Sex: Female
  Weight: 77.11 kg

DRUGS (1)
  1. IBRANCE [Suspect]
     Active Substance: PALBOCICLIB
     Indication: Breast cancer
     Dosage: OTHER QUANTITY : 1T;?FREQUENCY : DAILY;?OTHER ROUTE : PO 21D ON 7D OFF;?
     Route: 050

REACTIONS (1)
  - Death [None]

NARRATIVE: CASE EVENT DATE: 20230325
